FAERS Safety Report 22684980 (Version 3)
Quarter: 2023Q4

REPORT INFORMATION
  Report Type: Report from Study
  Country: US (occurrence: US)
  Receive Date: 20230710
  Receipt Date: 20231116
  Transmission Date: 20240110
  Serious: No
  Sender: FDA-Public Use
  Company Number: US-ACADIA PHARMACEUTICALS INC.-ACA-2023-PIM-002436

PATIENT
  Age: 73 Year
  Sex: Male

DRUGS (14)
  1. NUPLAZID [Suspect]
     Active Substance: PIMAVANSERIN TARTRATE
     Indication: Parkinson^s disease psychosis
     Dosage: 34 MILLIGRAM, QD
     Route: 048
  2. AMLODIPINE [Concomitant]
     Active Substance: AMLODIPINE BESYLATE
  3. CARBIDOPA\LEVODOPA [Concomitant]
     Active Substance: CARBIDOPA\LEVODOPA
  4. DONEPEZIL [Concomitant]
     Active Substance: DONEPEZIL
  5. ESOMEPRAZOLE [Concomitant]
     Active Substance: ESOMEPRAZOLE
  6. FINASTERIDE [Concomitant]
     Active Substance: FINASTERIDE
  7. ISOSORBIDE MONONITRATE [Concomitant]
     Active Substance: ISOSORBIDE MONONITRATE
  8. METFORMIN [Concomitant]
     Active Substance: METFORMIN HYDROCHLORIDE
  9. METOPROLOL [Concomitant]
     Active Substance: METOPROLOL
  10. MYRBETRIQ [Concomitant]
     Active Substance: MIRABEGRON
  11. RASAGILINE [Concomitant]
     Active Substance: RASAGILINE
  12. TAMSULOSIN [Concomitant]
     Active Substance: TAMSULOSIN
  13. TYLENOL [Concomitant]
     Active Substance: ACETAMINOPHEN
  14. ADVIL [Concomitant]
     Active Substance: IBUPROFEN

REACTIONS (8)
  - Memory impairment [Unknown]
  - Ill-defined disorder [Unknown]
  - Bradyphrenia [Unknown]
  - Limb discomfort [Unknown]
  - Therapeutic product effect delayed [Unknown]
  - Hypertension [Unknown]
  - Hallucination [Recovering/Resolving]
  - Hallucination [Unknown]

NARRATIVE: CASE EVENT DATE: 20230614
